FAERS Safety Report 25901422 (Version 5)
Quarter: 2025Q4

REPORT INFORMATION
  Report Type: Spontaneous
  Country: US (occurrence: US)
  Receive Date: 20251009
  Receipt Date: 20251210
  Transmission Date: 20260117
  Serious: No
  Sender: PFIZER
  Company Number: US-PFIZER INC-202500198795

PATIENT
  Age: 15 Year
  Sex: Male
  Weight: 46.72 kg

DRUGS (2)
  1. GENOTROPIN [Suspect]
     Active Substance: SOMATROPIN
     Dosage: 2.0 EVERY NIGHT AT 9 O^CLOCK
     Dates: start: 202506
  2. VITAMIN D3 [Concomitant]
     Active Substance: CHOLECALCIFEROL
     Indication: Vitamin D deficiency
     Dosage: UNK, DAILY (EVERY MORNING)
     Dates: start: 202504

REACTIONS (4)
  - Drug dose omission by device [Unknown]
  - Product storage error [Unknown]
  - Device physical property issue [Unknown]
  - Device breakage [Unknown]

NARRATIVE: CASE EVENT DATE: 20250101
